FAERS Safety Report 5563965-0 (Version None)
Quarter: 2007Q4

REPORT INFORMATION
  Report Type: 
  Country: None (occurrence: None)
  Receive Date: 20071217
  Receipt Date: 20071203
  Transmission Date: 20080405
  Serious: Yes (Hospitalization)
  Sender: FDA-Public Use
  Company Number: US-ELI_LILLY_AND_COMPANY-US200712000419

PATIENT
  Sex: Female

DRUGS (2)
  1. FORTEO [Suspect]
     Dosage: UNK, UNK
     Dates: start: 20071128, end: 20071129
  2. FORTEO [Suspect]
     Dates: start: 20071201

REACTIONS (4)
  - BLOOD TEST ABNORMAL [None]
  - GASTROINTESTINAL INFECTION [None]
  - HAEMORRHAGE [None]
  - RECTAL HAEMORRHAGE [None]
